FAERS Safety Report 25281515 (Version 1)
Quarter: 2025Q2

REPORT INFORMATION
  Report Type: Spontaneous
  Country: VN (occurrence: VN)
  Receive Date: 20250508
  Receipt Date: 20250508
  Transmission Date: 20250717
  Serious: Yes (Death, Hospitalization, Other)
  Sender: RANBAXY
  Company Number: VN-SUN PHARMACEUTICAL INDUSTRIES LTD-2025R1-506316

PATIENT
  Age: 44 Year
  Sex: Female

DRUGS (3)
  1. NOREPINEPHRINE BITARTRATE [Suspect]
     Active Substance: NOREPINEPHRINE BITARTRATE
     Indication: Prophylaxis
     Route: 065
  2. MEROPENEM [Suspect]
     Active Substance: MEROPENEM
     Indication: Prophylaxis
     Route: 042
  3. DEXAMETHASONE [Suspect]
     Active Substance: DEXAMETHASONE
     Indication: Prophylaxis
     Route: 065

REACTIONS (1)
  - Condition aggravated [Fatal]
